FAERS Safety Report 19479151 (Version 1)
Quarter: 2021Q2

REPORT INFORMATION
  Report Type: Spontaneous
  Country: IT (occurrence: IT)
  Receive Date: 20210630
  Receipt Date: 20210630
  Transmission Date: 20210717
  Serious: Yes (Other)
  Sender: FDA-Public Use
  Company Number: IT-MYLANLABS-2021M1038113

PATIENT
  Age: 69 Year
  Sex: Male
  Weight: 100 kg

DRUGS (1)
  1. CISPLATIN. [Suspect]
     Active Substance: CISPLATIN
     Indication: NEOPLASM MALIGNANT
     Dosage: 200 MILLIGRAM
     Route: 041
     Dates: start: 20210324, end: 20210324

REACTIONS (5)
  - Drug abuse [Unknown]
  - Skin warm [Unknown]
  - Intentional product misuse [Unknown]
  - Skin reaction [Unknown]
  - Papule [Unknown]

NARRATIVE: CASE EVENT DATE: 20210324
